FAERS Safety Report 17362926 (Version 1)
Quarter: 2020Q1

REPORT INFORMATION
  Report Type: Spontaneous
  Country: GB (occurrence: GB)
  Receive Date: 20200203
  Receipt Date: 20200203
  Transmission Date: 20200409
  Serious: Yes (Life-Threatening)
  Sender: FDA-Public Use
  Company Number: GB-SA-2020SA027239

PATIENT
  Age: 32 Year
  Sex: Male

DRUGS (3)
  1. ANAESTHETICS NOS [Concomitant]
     Indication: ANAESTHESIA
     Dosage: UNK, UNK
     Route: 065
     Dates: start: 20200109, end: 20200109
  2. ALEMTUZUMAB [Suspect]
     Active Substance: ALEMTUZUMAB
     Indication: IMMUNOSUPPRESSION
     Dosage: DILUTED IN 50ML 0.9% SALINE, UNK
     Route: 042
     Dates: start: 20200109, end: 20200109
  3. ANTIBIOTICS NOS [Concomitant]
     Active Substance: UNSPECIFIED INGREDIENT
     Indication: ANTIBIOTIC PROPHYLAXIS
     Dosage: UNK, UNK
     Route: 065
     Dates: start: 20200109, end: 20200109

REACTIONS (4)
  - Rash macular [Recovered/Resolved]
  - Bronchospasm [Recovered/Resolved]
  - Wheezing [Recovered/Resolved]
  - Product prescribing error [Unknown]

NARRATIVE: CASE EVENT DATE: 20200109
